FAERS Safety Report 7751484-2 (Version None)
Quarter: 2011Q3

REPORT INFORMATION
  Report Type: 
  Country: None (occurrence: None)
  Receive Date: 20110914
  Receipt Date: 20110902
  Transmission Date: 20111222
  Serious: Yes (Other)
  Sender: FDA-Public Use
  Company Number: PHEH2011US01220

PATIENT
  Sex: Male

DRUGS (10)
  1. BENADRYL [Concomitant]
     Indication: HYPERSENSITIVITY
     Dosage: 25 MG, UNK
  2. IMODIUM [Concomitant]
  3. ZYRTEC [Concomitant]
     Indication: HYPERSENSITIVITY
     Dosage: 10 MG, UNK
  4. DIOVAN [Concomitant]
     Indication: HYPERTENSION
  5. MORPHINE [Concomitant]
     Dosage: 15 MG, UNK
  6. ZOFRAN [Concomitant]
     Indication: NAUSEA
     Dosage: 8 MG, UNK
  7. TASIGNA [Suspect]
     Indication: GASTROINTESTINAL STROMAL TUMOUR
     Dosage: 400 MG, BID
     Route: 048
     Dates: start: 20110401, end: 20110601
  8. PROVENTIL [Concomitant]
     Indication: ASTHMA
  9. PREVACID [Concomitant]
     Dosage: 1 DF, QD
  10. ZOLPIDEM TARTRATE [Concomitant]
     Dosage: 10 MG, UNK

REACTIONS (2)
  - NEOPLASM PROGRESSION [None]
  - NEOPLASM MALIGNANT [None]
